FAERS Safety Report 4443745-X (Version None)
Quarter: 2004Q3

REPORT INFORMATION
  Report Type: 
  Country: None (occurrence: None)
  Receive Date: 20040729
  Receipt Date: 20030916
  Transmission Date: 20050211
  Serious: Yes (Hospitalization)
  Sender: FDA-Public Use
  Company Number: US-JNJFOC-20030703161

PATIENT
  Age: 8 Year
  Sex: Female
  Weight: 24.4942 kg

DRUGS (3)
  1. RISPERDAL [Suspect]
     Indication: CHILDHOOD PSYCHOSIS
     Dosage: SEE IMAGE
     Route: 048
     Dates: start: 19990601, end: 20030401
  2. RISPERDAL [Suspect]
     Indication: CHILDHOOD PSYCHOSIS
     Dosage: SEE IMAGE
     Route: 048
     Dates: start: 20030701
  3. ZOLOFT [Suspect]
     Indication: DISTURBANCE IN ATTENTION
     Dosage: 60 MG, 1 IN 1 DAY, ORAL
     Route: 048
     Dates: start: 20030401, end: 20030601

REACTIONS (3)
  - AGGRESSION [None]
  - DYSKINESIA [None]
  - WEIGHT DECREASED [None]
